FAERS Safety Report 8394721-6 (Version None)
Quarter: 2012Q2

REPORT INFORMATION
  Report Type: 
  Country: None (occurrence: None)
  Receive Date: 20120530
  Receipt Date: 20120518
  Transmission Date: 20120825
  Serious: No
  Sender: FDA-Public Use
  Company Number: US-ASTRAZENECA-2012SE32450

PATIENT
  Sex: Female

DRUGS (2)
  1. NEBULIZER MEDICATION [Concomitant]
  2. SYMBICORT [Suspect]
     Route: 055

REACTIONS (2)
  - DYSPNOEA [None]
  - INTENTIONAL DRUG MISUSE [None]
